FAERS Safety Report 6427171-X (Version None)
Quarter: 2009Q4

REPORT INFORMATION
  Report Type: 
  Country: None (occurrence: None)
  Receive Date: 20091104
  Receipt Date: 20091015
  Transmission Date: 20100525
  Serious: No
  Sender: FDA-Public Use
  Company Number: US-TYCO HEALTHCARE/MALLINCKRODT-T200901896

PATIENT
  Sex: Male

DRUGS (1)
  1. THALLOUS CHLORIDE TL-201 [Suspect]
     Dosage: UNK
     Dates: start: 20090501

REACTIONS (1)
  - HEADACHE [None]
